FAERS Safety Report 9966796 (Version 1)
Quarter: 2014Q1

REPORT INFORMATION
  Report Type: Report from Study
  Country: US (occurrence: US)
  Receive Date: 20140305
  Receipt Date: 20140305
  Transmission Date: 20141002
  Serious: No
  Sender: FDA-Public Use
  Company Number: US-ABBVIE-13P-163-1122783-00

PATIENT
  Age: 34 Year
  Sex: Female

DRUGS (6)
  1. HUMIRA [Suspect]
     Indication: RHEUMATOID ARTHRITIS
     Dates: start: 20130717
  2. PLAQUENIL [Concomitant]
     Indication: RHEUMATOID ARTHRITIS
  3. PREDNISONE [Concomitant]
     Indication: RHEUMATOID ARTHRITIS
  4. UNNAMED BIRTH CONTROL PILLS [Concomitant]
     Indication: CONTRACEPTION
     Route: 048
  5. TART CHERRY SUPPLEMENT [Concomitant]
     Indication: NUTRITIONAL SUPPLEMENTATION
  6. SEVEN SUPPLEMENT [Concomitant]
     Indication: VITAMIN SUPPLEMENTATION

REACTIONS (7)
  - Rhinorrhoea [Not Recovered/Not Resolved]
  - Wrong technique in drug usage process [Not Recovered/Not Resolved]
  - Incorrect dose administered [Not Recovered/Not Resolved]
  - Sensory disturbance [Unknown]
  - Sinus headache [Not Recovered/Not Resolved]
  - Injection site pain [Unknown]
  - Diarrhoea [Recovered/Resolved]
